FAERS Safety Report 14141235 (Version 1)
Quarter: 2017Q4

REPORT INFORMATION
  Report Type: Spontaneous
  Country: US (occurrence: None)
  Receive Date: 20171027
  Receipt Date: 20171027
  Transmission Date: 20180321
  Serious: Yes (Disabling)
  Sender: FDA-Public Use
  Company Number: None

PATIENT
  Age: 75 Year
  Sex: Female
  Weight: 63.5 kg

DRUGS (14)
  1. BIOTIN [Concomitant]
     Active Substance: BIOTIN
  2. PROLIA [Suspect]
     Active Substance: DENOSUMAB
     Indication: OSTEOPOROSIS POSTMENOPAUSAL
     Dosage: EVERY 6 MOS. INJECTION UNDER SKIN, UPPER ARM, UPPER THIGH, ABDOMEN
     Dates: start: 201705
  3. ATORVASTATIN [Concomitant]
     Active Substance: ATORVASTATIN
  4. VITAMIN D3 [Concomitant]
     Active Substance: CHOLECALCIFEROL
  5. IB GARD [Concomitant]
  6. ONDANSETRON [Concomitant]
     Active Substance: ONDANSETRON
  7. VITAFUSION WOMEN^S GUMMY VITAMINS [Concomitant]
  8. CALTRATE WITH VITAMIN D [Concomitant]
     Active Substance: CALCIUM CARBONATE\CHOLECALCIFEROL
  9. CLONAZEPAM. [Concomitant]
     Active Substance: CLONAZEPAM
  10. XIFAXAN [Concomitant]
     Active Substance: RIFAXIMIN
  11. VIBERZI [Concomitant]
     Active Substance: ELUXADOLINE
  12. L-THYROXINE [Concomitant]
     Active Substance: LEVOTHYROXINE
  13. TRAZODONE [Concomitant]
     Active Substance: TRAZODONE HYDROCHLORIDE
  14. PROBIOTIC VSL #3 [Concomitant]

REACTIONS (3)
  - Ear pain [None]
  - Pain in jaw [None]
  - Temporomandibular joint syndrome [None]

NARRATIVE: CASE EVENT DATE: 201706
